FAERS Safety Report 25980665 (Version 1)
Quarter: 2025Q4

REPORT INFORMATION
  Report Type: Spontaneous
  Country: US (occurrence: None)
  Receive Date: 20251030
  Receipt Date: 20251030
  Transmission Date: 20260117
  Serious: No
  Sender: FDA-CTU
  Company Number: None

PATIENT
  Age: 63 Year
  Sex: Female

DRUGS (1)
  1. IQIRVO [Suspect]
     Active Substance: ELAFIBRANOR
     Dosage: FREQUENCY : DAILY;?
     Route: 048
     Dates: start: 20250201

REACTIONS (2)
  - Restless legs syndrome [None]
  - Therapy cessation [None]
